FAERS Safety Report 15214604 (Version 1)
Quarter: 2018Q3

REPORT INFORMATION
  Report Type: Report from Study
  Country: US (occurrence: US)
  Receive Date: 20180730
  Receipt Date: 20180730
  Transmission Date: 20181010
  Serious: Yes (Hospitalization, Other)
  Sender: FDA-Public Use
  Company Number: US-ASTELLAS-2018US033793

PATIENT
  Age: 59 Year
  Sex: Female

DRUGS (5)
  1. TACROLIMUS. [Interacting]
     Active Substance: TACROLIMUS
     Dosage: 0.5 MG, TWICE DAILY
     Route: 048
  2. TACROLIMUS. [Interacting]
     Active Substance: TACROLIMUS
     Dosage: 2 MG MORNING AND 1.5MG EVENING)
     Route: 048
  3. DIFLUCAN [Interacting]
     Active Substance: FLUCONAZOLE
     Indication: FUNGAL INFECTION
     Route: 065
  4. TACROLIMUS. [Suspect]
     Active Substance: TACROLIMUS
     Indication: RENAL TRANSPLANT
     Dosage: UNK, UNKNOWN FREQ.
     Route: 065
  5. TACROLIMUS. [Interacting]
     Active Substance: TACROLIMUS
     Route: 048

REACTIONS (11)
  - Nervous system disorder [Recovering/Resolving]
  - Fungal infection [Unknown]
  - Toxicity to various agents [Unknown]
  - Urinary retention [Unknown]
  - Bronchitis [Unknown]
  - Drug interaction [Unknown]
  - Pneumonia [Unknown]
  - Renal failure [Unknown]
  - Immunosuppressant drug level increased [Unknown]
  - Muscle twitching [Unknown]
  - Diplegia [Recovered/Resolved]

NARRATIVE: CASE EVENT DATE: 2018
